FAERS Safety Report 9440132 (Version 3)
Quarter: 2013Q3

REPORT INFORMATION
  Report Type: Spontaneous
  Country: US (occurrence: US)
  Receive Date: 20130805
  Receipt Date: 20130918
  Transmission Date: 20140515
  Serious: Yes (Other)
  Sender: FDA-Public Use
  Company Number: US-PFIZER INC-2013226644

PATIENT
  Age: 50 Year
  Sex: Female
  Weight: 49 kg

DRUGS (11)
  1. XANAX [Suspect]
     Indication: ANXIETY
     Dosage: 0.1 MG, UNK
     Dates: start: 201211
  2. LIPITOR [Suspect]
     Indication: BLOOD CHOLESTEROL INCREASED
     Dosage: 20 MG, DAILY
     Dates: start: 201211
  3. LISINOPRIL [Suspect]
     Dosage: HALF TABLET EVERY 12 HOURS
     Route: 048
     Dates: start: 201211
  4. MAGNESIUM [Suspect]
     Dosage: TWO IN MORNING AND ONE IN AFTERNOON
     Route: 048
     Dates: start: 201211
  5. METOPROLOL TARTRATE [Suspect]
     Dosage: 25 MG, 2X/DAY
     Dates: start: 201211
  6. DILANTIN [Suspect]
     Indication: CONVULSION
     Dosage: 100 MG, 2X/DAY
     Dates: start: 201211, end: 2013
  7. DILANTIN [Suspect]
     Dosage: 100 MG, 3X/DAY
     Dates: start: 2013
  8. ASPIRIN [Suspect]
     Dosage: 81 MG, ALTERNATE DAY
     Dates: start: 201211
  9. TORADOL [Suspect]
     Dosage: UNK
     Dates: start: 201211
  10. CYCLOBENZAPRINE [Suspect]
     Indication: BACK PAIN
     Dosage: 10 MG, 3X/DAY
     Dates: start: 201211
  11. LORTAB [Suspect]
     Dosage: UNK
     Dates: start: 201211

REACTIONS (5)
  - Convulsion [Unknown]
  - Diarrhoea [Unknown]
  - Drug level decreased [Unknown]
  - Drug ineffective [Unknown]
  - Memory impairment [Unknown]
